FAERS Safety Report 18567135 (Version 1)
Quarter: 2020Q4

REPORT INFORMATION
  Report Type: Report from Study
  Country: DE (occurrence: DE)
  Receive Date: 20201201
  Receipt Date: 20201201
  Transmission Date: 20210114
  Serious: Yes (Hospitalization)
  Sender: FDA-Public Use
  Company Number: DE-TAKEDA-2020TUS051010

PATIENT
  Sex: Male
  Weight: 103 kg

DRUGS (6)
  1. PROMETHAZINE [Concomitant]
     Active Substance: PROMETHAZINE HYDROCHLORIDE
     Dosage: 100 MILLIGRAM
     Route: 065
  2. FALITHROM [Concomitant]
     Active Substance: PHENPROCOUMON
     Dosage: UNK
     Route: 065
  3. HUMAN IMMUNOGLOBULIN; HYALURONIDASE [Suspect]
     Active Substance: HUMAN IMMUNOGLOBULIN G\HYALURONIDASE RECOMBINANT HUMAN
     Indication: SECONDARY IMMUNODEFICIENCY
     Dosage: 50 UNK, 4/WEEK
     Route: 065
     Dates: start: 20150128
  4. HUMAN IMMUNOGLOBULIN; HYALURONIDASE [Suspect]
     Active Substance: HUMAN IMMUNOGLOBULIN G\HYALURONIDASE RECOMBINANT HUMAN
     Dosage: 30 GRAM, MONTHLY
     Route: 065
  5. OMEPRAZOLE [OMEPRAZOLE SODIUM] [Concomitant]
     Active Substance: OMEPRAZOLE SODIUM
     Dosage: UNK
     Route: 065
  6. HUMAN IMMUNOGLOBULIN; HYALURONIDASE [Suspect]
     Active Substance: HUMAN IMMUNOGLOBULIN G\HYALURONIDASE RECOMBINANT HUMAN
     Indication: HODGKIN^S DISEASE
     Dosage: 20 GRAM, 3/WEEK
     Route: 065
     Dates: start: 20201116

REACTIONS (8)
  - Fall [Unknown]
  - Multiple fractures [Unknown]
  - Parotitis [Unknown]
  - Peripheral swelling [Unknown]
  - Pain [Unknown]
  - Enteritis [Recovered/Resolved]
  - Bronchitis [Recovered/Resolved]
  - Otitis media acute [Unknown]

NARRATIVE: CASE EVENT DATE: 20160217
